FAERS Safety Report 25015714 (Version 1)
Quarter: 2025Q1

REPORT INFORMATION
  Report Type: Spontaneous
  Country: US (occurrence: US)
  Receive Date: 20250227
  Receipt Date: 20250227
  Transmission Date: 20250409
  Serious: No
  Sender: AMGEN
  Company Number: US-AMGEN-USASP2025037950

PATIENT
  Age: 25 Year
  Sex: Male

DRUGS (1)
  1. ACTIMMUNE [Suspect]
     Active Substance: INTERFERON GAMMA-1B
     Indication: Neutrophil function disorder
     Dosage: 85 MICROGRAM, 3 TIMES/WK (100MCG/0.5; 85MCG UNDER THE SKIN THREE TIMES PER WEEK)
     Route: 058
     Dates: start: 202102

REACTIONS (3)
  - Off label use [Unknown]
  - Feeling cold [Not Recovered/Not Resolved]
  - Piloerection [Not Recovered/Not Resolved]

NARRATIVE: CASE EVENT DATE: 20210201
